FAERS Safety Report 8398608-4 (Version None)
Quarter: 2012Q2

REPORT INFORMATION
  Report Type: 
  Country: None (occurrence: None)
  Receive Date: 20120524
  Receipt Date: 20120514
  Transmission Date: 20120825
  Serious: Yes (Other)
  Sender: FDA-Public Use
  Company Number: ENTC2012-0214

PATIENT
  Age: 88 Year
  Sex: Female

DRUGS (1)
  1. STALEVO 100 [Suspect]

REACTIONS (2)
  - PNEUMONIA ASPIRATION [None]
  - DYSPHAGIA [None]
